FAERS Safety Report 9029080 (Version 2)
Quarter: 2013Q2

REPORT INFORMATION
  Report Type: Report from Study
  Country: FR (occurrence: FR)
  Receive Date: 20130122
  Receipt Date: 20130506
  Transmission Date: 20140414
  Serious: Yes (Other)
  Sender: FDA-Public Use
  Company Number: FR-ROCHE-1179964

PATIENT
  Sex: Male
  Weight: 69 kg

DRUGS (4)
  1. PEG-INTERFERON ALFA 2A [Suspect]
     Indication: HEPATITIS B
     Route: 065
     Dates: start: 20120816
  2. PEG-INTERFERON ALFA 2A [Suspect]
     Route: 065
  3. PEG-INTERFERON ALFA 2A [Suspect]
     Route: 065
     Dates: end: 20120103
  4. TENOFOVIR [Suspect]
     Indication: HEPATITIS B
     Route: 065
     Dates: start: 20090328

REACTIONS (2)
  - Hepatocellular injury [Unknown]
  - Alanine aminotransferase increased [Unknown]
